FAERS Safety Report 8791048 (Version 1)
Quarter: 2012Q4

REPORT INFORMATION
  Report Type: Spontaneous
  Country: TR (occurrence: None)
  Receive Date: 20120910
  Receipt Date: 20120910
  Transmission Date: 20130627
  Serious: No
  Sender: FDA-Public Use
  Company Number: TR-BANPHARM-20120131

PATIENT
  Age: 33 Year
  Sex: Male

DRUGS (1)
  1. NAPROXEN SODIUM [Suspect]
     Dates: end: 2011

REACTIONS (2)
  - Drug eruption [None]
  - Skin hyperpigmentation [None]
